FAERS Safety Report 5260863-7 (Version None)
Quarter: 2007Q1

REPORT INFORMATION
  Report Type: 
  Country: None (occurrence: None)
  Receive Date: 20070309
  Receipt Date: 20070227
  Transmission Date: 20070707
  Serious: Yes (Hospitalization)
  Sender: FDA-Public Use
  Company Number: FR-ROCHE-470686

PATIENT
  Age: 68 Year
  Sex: Male

DRUGS (2)
  1. ROCEPHIN [Suspect]
     Dosage: FORM REPORTED AS: INJECTABLE SOLUTION.
     Route: 030
     Dates: start: 20061002, end: 20061007
  2. SOLU-MEDROL [Suspect]
     Dosage: DRUG NAME REPORTED AS: SOLUMEDROL 120 MG/ 2 ML. FORM REPORTED AS: LYOPHILISED.
     Route: 030
     Dates: start: 20061002, end: 20061007

REACTIONS (1)
  - PANCREATITIS ACUTE [None]
